FAERS Safety Report 8797818 (Version 2)
Quarter: 2015Q1

REPORT INFORMATION
  Report Type: Report from Study
  Country: US (occurrence: US)
  Receive Date: 20120919
  Receipt Date: 20150312
  Transmission Date: 20150721
  Serious: Yes (Death)
  Sender: FDA-Public Use
  Company Number: US-ROCHE-1122675

PATIENT
  Age: 75 Year
  Sex: Male

DRUGS (11)
  1. ZOMETA [Concomitant]
     Active Substance: ZOLEDRONIC ACID
     Route: 042
  2. TAXOTERE [Concomitant]
     Active Substance: DOCETAXEL
     Route: 042
  3. DEXAMETHASONE. [Concomitant]
     Active Substance: DEXAMETHASONE
     Route: 042
  4. BENADRYL [Concomitant]
     Active Substance: DIPHENHYDRAMINE HYDROCHLORIDE
     Route: 042
  5. AVASTIN [Suspect]
     Active Substance: BEVACIZUMAB
     Indication: PROSTATE CANCER
     Route: 042
  6. AVASTIN [Suspect]
     Active Substance: BEVACIZUMAB
     Indication: BONE CANCER
     Route: 042
     Dates: start: 20080826
  7. DECADRON [Concomitant]
     Active Substance: DEXAMETHASONE
     Route: 042
  8. GEMZAR [Concomitant]
     Active Substance: GEMCITABINE HYDROCHLORIDE
     Route: 042
  9. ZOLEDRONIC ACID [Concomitant]
     Active Substance: ZOLEDRONIC ACID
     Route: 065
  10. PALONOSETRON [Concomitant]
     Active Substance: PALONOSETRON
     Route: 042
  11. COMPAZINE [Concomitant]
     Active Substance: PROCHLORPERAZINE MALEATE
     Route: 048

REACTIONS (3)
  - Death [Fatal]
  - Blood pressure increased [Unknown]
  - Weight increased [Unknown]

NARRATIVE: CASE EVENT DATE: 20100318
